FAERS Safety Report 9928802 (Version 1)
Quarter: 2014Q1

REPORT INFORMATION
  Report Type: Spontaneous
  Country: IT (occurrence: None)
  Receive Date: 20140225
  Receipt Date: 20140225
  Transmission Date: 20141002
  Serious: Yes (Hospitalization)
  Sender: FDA-Public Use
  Company Number: 2014MPI00118

PATIENT
  Age: 20 Year
  Sex: Male

DRUGS (2)
  1. ADCETRIS (BRENTUXIMAB VEDOTIN) INJECTION [Suspect]
     Indication: HODGKIN^S DISEASE
     Route: 042
     Dates: start: 20130205, end: 20130605
  2. BISOPROLOL HEMIFUMARATE (BISOPROLOL HEMIFUMARATE) [Concomitant]

REACTIONS (4)
  - Respiratory distress [None]
  - Pneumonia fungal [None]
  - Pleural effusion [None]
  - Pyrexia [None]
